FAERS Safety Report 5047925-4 (Version None)
Quarter: 2006Q3

REPORT INFORMATION
  Report Type: 
  Country: None (occurrence: None)
  Receive Date: 20060711
  Receipt Date: 20060705
  Transmission Date: 20061208
  Serious: Yes (Hospitalization)
  Sender: FDA-Public Use
  Company Number: IT-GLAXOSMITHKLINE-B0430397A

PATIENT
  Age: 75 Year
  Sex: Male

DRUGS (4)
  1. AUGMENTIN '125' [Suspect]
     Indication: CELLULITIS
     Dosage: 3G PER DAY
     Route: 048
     Dates: start: 20060607, end: 20060615
  2. ALLOPURINOL [Suspect]
     Indication: RENAL FAILURE
     Dosage: 150MG PER DAY
     Route: 048
     Dates: end: 20060619
  3. MOXIFLOXACIN HCL [Concomitant]
     Indication: CELLULITIS
     Dosage: 400MG PER DAY
     Route: 048
     Dates: start: 20060607, end: 20060615
  4. RAMIPRIL [Concomitant]
     Indication: RENAL FAILURE
     Dosage: 5MG PER DAY
     Route: 048

REACTIONS (6)
  - ALKALOSIS [None]
  - ATRIAL FIBRILLATION [None]
  - BLOOD PRESSURE DECREASED [None]
  - ERYTHEMA MULTIFORME [None]
  - RENAL FAILURE ACUTE [None]
  - TACHYCARDIA [None]
